FAERS Safety Report 7736850-3 (Version None)
Quarter: 2011Q3

REPORT INFORMATION
  Report Type: 
  Country: None (occurrence: None)
  Receive Date: 20110902
  Receipt Date: 20110822
  Transmission Date: 20111222
  Serious: Yes (Hospitalization)
  Sender: FDA-Public Use
  Company Number: 2011MA012360

PATIENT
  Age: 37 Year
  Sex: Female

DRUGS (7)
  1. BUPROPION HYDROCHLORIDE (WELLBUTRIN XL) [Suspect]
     Indication: MAJOR DEPRESSION
     Dosage: 300 MG;QD
  2. FLUOXETINE [Suspect]
     Indication: MAJOR DEPRESSION
     Dosage: 40 MG
  3. QUETIAPINE [Concomitant]
  4. DULOXETIME HYDROCHLORIDE [Concomitant]
  5. TOPIRAMATE [Suspect]
     Indication: MIGRAINE
  6. PREMPRO [Suspect]
     Indication: HOT FLUSH
  7. LEVOTHYROXINE SODIUM [Suspect]
     Indication: HYPOTHYROIDISM

REACTIONS (15)
  - HYPERHIDROSIS [None]
  - WEIGHT INCREASED [None]
  - METABOLIC DISORDER [None]
  - TACHYCARDIA [None]
  - HYPOTHYROIDISM [None]
  - TEARFULNESS [None]
  - SUICIDAL IDEATION [None]
  - VISION BLURRED [None]
  - CHOLESTEROL GRANULOMA [None]
  - CEREBRAL ATROPHY [None]
  - HOT FLUSH [None]
  - MIGRAINE [None]
  - AMENORRHOEA [None]
  - HYPERTENSION [None]
  - ANTIDEPRESSANT DRUG LEVEL INCREASED [None]
